FAERS Safety Report 5188857-0 (Version None)
Quarter: 2006Q4

REPORT INFORMATION
  Report Type: 
  Country: None (occurrence: None)
  Receive Date: 20061221
  Receipt Date: 20061213
  Transmission Date: 20070319
  Serious: Yes (Other)
  Sender: FDA-Public Use
  Company Number: JP-ROXANE LABORATORIES, INC-2006-BP-14638RO

PATIENT
  Age: 62 Year
  Sex: Male

DRUGS (10)
  1. DIGOXIN [Suspect]
     Dosage: 0.25 MG/DAY
  2. FLUCONAZOLE [Concomitant]
     Indication: BRONCHOPULMONARY ASPERGILLOSIS
     Route: 042
  3. ITRACONAZOLE [Concomitant]
  4. LEVOTHYROXINE SODIUM [Concomitant]
  5. WARFARIN SODIUM [Concomitant]
  6. CANDESARTAN CILEXETIL [Concomitant]
  7. ISOSORBIDE DINITRATE [Concomitant]
  8. FUROSEMIDE INTENSOL [Concomitant]
  9. LANSOPRAZOLE [Concomitant]
  10. FERROUS CITRATE [Concomitant]

REACTIONS (9)
  - ATRIOVENTRICULAR BLOCK FIRST DEGREE [None]
  - DYSGEUSIA [None]
  - ELECTROCARDIOGRAM ABNORMAL [None]
  - HYPOGEUSIA [None]
  - OPTIC NEURITIS RETROBULBAR [None]
  - PHOTOPHOBIA [None]
  - THERAPEUTIC AGENT TOXICITY [None]
  - VENTRICULAR HYPERTROPHY [None]
  - XANTHOPSIA [None]
